FAERS Safety Report 9174444 (Version 1)
Quarter: 2013Q1

REPORT INFORMATION
  Report Type: Spontaneous
  Country: US (occurrence: US)
  Receive Date: 20130320
  Receipt Date: 20130320
  Transmission Date: 20140127
  Serious: No
  Sender: FDA-Public Use
  Company Number: US-MYLANLABS-2012S1007118

PATIENT
  Age: 63 Year
  Sex: Female
  Weight: 89.81 kg

DRUGS (8)
  1. ESTRADIOL TRANSDERMAL SYSTEM, USP [Suspect]
     Indication: HORMONE REPLACEMENT THERAPY
     Dosage: CHANGE QWEEK
     Route: 062
     Dates: start: 201112
  2. LOTRONEX /01482801/ [Concomitant]
  3. INDERAL [Concomitant]
  4. JANUVIA [Concomitant]
  5. ACTOS [Concomitant]
  6. GLYBURIDE [Concomitant]
  7. VITAMIN C [Concomitant]
  8. FISH OIL [Concomitant]

REACTIONS (5)
  - Application site haemorrhage [Not Recovered/Not Resolved]
  - Application site irritation [Not Recovered/Not Resolved]
  - Application site pruritus [Not Recovered/Not Resolved]
  - Application site pain [Not Recovered/Not Resolved]
  - Application site discomfort [Not Recovered/Not Resolved]
